FAERS Safety Report 7586166-3 (Version None)
Quarter: 2011Q3

REPORT INFORMATION
  Report Type: 
  Country: None (occurrence: None)
  Receive Date: 20110701
  Receipt Date: 20110616
  Transmission Date: 20111222
  Serious: No
  Sender: FDA-Public Use
  Company Number: US-B.I. PHARMACEUTICALS,INC./RIDGEFIELD-2011-BP-13425BP

PATIENT
  Age: 78 Year
  Sex: Male

DRUGS (13)
  1. ZOCOR [Concomitant]
     Indication: BLOOD CHOLESTEROL INCREASED
     Dosage: 40 MG
  2. ASPIRIN [Concomitant]
  3. PRADAXA [Suspect]
     Indication: ANTICOAGULANT THERAPY
  4. MELOXICAM [Concomitant]
     Indication: ARTHRALGIA
  5. VITAMIN E [Concomitant]
  6. AMIODARONE HCL [Concomitant]
     Dates: start: 20110522
  7. PRADAXA [Suspect]
     Indication: ATRIAL FIBRILLATION
  8. VITAMIN B-12 [Concomitant]
  9. PRADAXA [Suspect]
     Indication: ATRIAL FLUTTER
     Dosage: 300 MG
     Route: 048
     Dates: start: 20110514
  10. VITAMIN D [Concomitant]
  11. ATENOLOL [Concomitant]
     Indication: HYPERTENSION
     Dosage: 100 MG
  12. NIASPAN [Concomitant]
     Dosage: 500 MG
  13. OMEPRAZOLE [Concomitant]

REACTIONS (7)
  - HEADACHE [None]
  - ASTHENIA [None]
  - WEIGHT INCREASED [None]
  - FLATULENCE [None]
  - DIZZINESS [None]
  - WEIGHT DECREASED [None]
  - DECREASED APPETITE [None]
